FAERS Safety Report 5918149-0 (Version None)
Quarter: 2008Q4

REPORT INFORMATION
  Report Type: 
  Country: None (occurrence: None)
  Receive Date: 20081014
  Receipt Date: 20081006
  Transmission Date: 20090506
  Serious: Yes (Other)
  Sender: FDA-Public Use
  Company Number: JP-ASTRAZENECA-2008AP06051

PATIENT
  Age: 71 Year
  Sex: Female
  Weight: 40 kg

DRUGS (7)
  1. ARIMIDEX [Suspect]
     Indication: BREAST CANCER
     Route: 048
     Dates: start: 20080204, end: 20080805
  2. CETAPRIL [Concomitant]
     Indication: HYPERTENSION
     Route: 048
     Dates: start: 20071010
  3. NORVASC [Concomitant]
     Indication: HYPERTENSION
     Route: 048
     Dates: start: 20071010
  4. AZUCURENIN S [Concomitant]
     Indication: GASTRITIS
     Route: 048
     Dates: start: 20071010
  5. MAGMITT [Concomitant]
     Indication: CONSTIPATION
     Route: 048
     Dates: start: 20071010
  6. BUFFERIN [Concomitant]
     Indication: CEREBROVASCULAR DISORDER
     Route: 048
     Dates: start: 20071030, end: 20080513
  7. EPADEL S [Concomitant]
     Indication: CEREBROVASCULAR DISORDER
     Route: 048
     Dates: start: 20080514

REACTIONS (1)
  - THROMBOCYTOPENIA [None]
